FAERS Safety Report 9856461 (Version 1)
Quarter: 2014Q1

REPORT INFORMATION
  Report Type: Spontaneous
  Country: US (occurrence: US)
  Receive Date: 20140130
  Receipt Date: 20140130
  Transmission Date: 20141002
  Serious: Yes (Death)
  Sender: FDA-Public Use
  Company Number: CHPA2014US001400

PATIENT
  Age: 23 Year
  Sex: Male

DRUGS (2)
  1. DIPHENHYDRAMINE [Suspect]
     Route: 048
  2. ETHANOL [Suspect]
     Route: 048

REACTIONS (1)
  - Intentional drug misuse [Fatal]
